FAERS Safety Report 18397364 (Version 6)
Quarter: 2021Q3

REPORT INFORMATION
  Report Type: Spontaneous
  Country: IT (occurrence: IT)
  Receive Date: 20201019
  Receipt Date: 20210719
  Transmission Date: 20211014
  Serious: Yes (Hospitalization, Other)
  Sender: FDA-Public Use
  Company Number: IT-SUN PHARMACEUTICAL INDUSTRIES LTD-2020RR-264513

PATIENT
  Age: 7 Year
  Sex: Female

DRUGS (2)
  1. AMOXICILLIN/CLAVULANIC ACID RANBAXY [Suspect]
     Active Substance: AMOXICILLIN\CLAVULANIC ACID
     Indication: PRODUCT USED FOR UNKNOWN INDICATION
     Route: 065
  2. IBUPROFEN. [Suspect]
     Active Substance: IBUPROFEN
     Indication: PRODUCT USED FOR UNKNOWN INDICATION
     Route: 065

REACTIONS (4)
  - Drug ineffective [Unknown]
  - Pyrexia [Unknown]
  - Toxic epidermal necrolysis [Unknown]
  - Condition aggravated [Unknown]
